FAERS Safety Report 16244688 (Version 7)
Quarter: 2019Q4

REPORT INFORMATION
  Report Type: Spontaneous
  Country: JP (occurrence: JP)
  Receive Date: 20190426
  Receipt Date: 20191216
  Transmission Date: 20200122
  Serious: Yes (Other)
  Sender: FDA-Public Use
  Company Number: JP-AMGEN-JPNSP2019064759

PATIENT
  Age: 79 Year
  Sex: Male
  Weight: 57.4 kg

DRUGS (6)
  1. PARSABIV [Suspect]
     Active Substance: ETELCALCETIDE HYDROCHLORIDE
     Indication: HYPERPARATHYROIDISM SECONDARY
     Dosage: 2.5 MILLIGRAM, 3 TIMES/WK (2.5 MG, Q56H)
     Route: 010
     Dates: start: 20190125
  2. CALCITRIOL. [Concomitant]
     Active Substance: CALCITRIOL
     Dosage: 1 MICROGRAM, 3 TIMES/WK (1 UG, Q56H)
     Route: 041
     Dates: end: 20190327
  3. CALCITRIOL. [Concomitant]
     Active Substance: CALCITRIOL
     Dosage: 1.5 MICROGRAM, 3 TIMES/WK
     Route: 041
     Dates: start: 20190330, end: 20191007
  4. RIONA [Concomitant]
     Active Substance: FERRIC CITRATE ANHYDROUS
     Dosage: 750 MILLIGRAM, QD (750 MG, EVERYDAY)
     Route: 048
     Dates: end: 20191009
  5. CALCITRIOL. [Concomitant]
     Active Substance: CALCITRIOL
     Dosage: 1 MILLIGRAM, 3 TIMES/WK (1.0 MG, Q56H)
     Route: 041
     Dates: start: 20191009
  6. NESP [Concomitant]
     Active Substance: DARBEPOETIN ALFA
     Dosage: 20 MICROGRAM, QWK (20 UG, QW)
     Route: 065
     Dates: end: 20190802

REACTIONS (1)
  - Shunt stenosis [Recovered/Resolved]

NARRATIVE: CASE EVENT DATE: 20190329
